FAERS Safety Report 7998012-4 (Version None)
Quarter: 2011Q4

REPORT INFORMATION
  Report Type: 
  Country: None (occurrence: None)
  Receive Date: 20111221
  Receipt Date: 20101111
  Transmission Date: 20120403
  Serious: No
  Sender: FDA-Public Use
  Company Number: US-GLAXOSMITHKLINE-A0892039A

PATIENT
  Age: 56 Year
  Sex: Male

DRUGS (7)
  1. ASPIRIN [Concomitant]
  2. VITAMIN D [Concomitant]
  3. SIMVASTATIN [Concomitant]
  4. VITAMIN C [Concomitant]
  5. NIACIN [Concomitant]
  6. VITAMIN E [Concomitant]
  7. LOVAZA [Suspect]
     Indication: BLOOD TRIGLYCERIDES INCREASED
     Dosage: 1G PER DAY
     Route: 048
     Dates: start: 20080101

REACTIONS (5)
  - ERUCTATION [None]
  - DIARRHOEA [None]
  - PRODUCT QUALITY ISSUE [None]
  - DYSPEPSIA [None]
  - MALAISE [None]
